FAERS Safety Report 5511709-0 (Version None)
Quarter: 2007Q4

REPORT INFORMATION
  Report Type: 
  Country: None (occurrence: None)
  Receive Date: 20071109
  Receipt Date: 20071030
  Transmission Date: 20080405
  Serious: Yes (Other)
  Sender: FDA-Public Use
  Company Number: FR-ABBOTT-07P-056-0422736-00

PATIENT
  Sex: Male

DRUGS (1)
  1. MICROPAKINE GRANULE [Suspect]
     Indication: PETIT MAL EPILEPSY
     Route: 048
     Dates: start: 20070901

REACTIONS (1)
  - EPILEPSY [None]
